FAERS Safety Report 11024745 (Version 1)
Quarter: 2015Q2

REPORT INFORMATION
  Report Type: Spontaneous
  Country: US (occurrence: None)
  Receive Date: 20150413
  Receipt Date: 20150413
  Transmission Date: 20150821
  Serious: Yes (Hospitalization)
  Sender: FDA-Public Use
  Company Number: None

PATIENT
  Age: 80 Year
  Sex: Female
  Weight: 111 kg

DRUGS (12)
  1. DOCUSATE SODIIUM (COLACE) [Concomitant]
  2. KLOR-CON [Concomitant]
     Active Substance: POTASSIUM CHLORIDE
  3. ATENOLOL (TENORMIN) [Concomitant]
  4. CALCIUM CARBONATE ANTACID [Concomitant]
  5. COLECALCIFEROL (VITAMIN D-3) [Concomitant]
  6. POLYSACCHARIDE IRON COMPLEX (POLUSACCHARIDE IRON PO) [Concomitant]
  7. ALBUTEROL. [Concomitant]
     Active Substance: ALBUTEROL
  8. FUROSEMIDE (LASIX) [Concomitant]
  9. PRAVASTATIN (PRAVACHOL) [Concomitant]
  10. WARFARIN 5 MG [Suspect]
     Active Substance: WARFARIN
     Indication: ATRIAL FIBRILLATION
     Route: 048
  11. B  COMPLEX VITAMINS (VITAMIN B COMPLEX) [Concomitant]
  12. CIMETIDINE [Suspect]
     Active Substance: CIMETIDINE
     Indication: GASTROOESOPHAGEAL REFLUX DISEASE
     Route: 048

REACTIONS (3)
  - Haematochezia [None]
  - International normalised ratio increased [None]
  - Drug interaction [None]

NARRATIVE: CASE EVENT DATE: 20150331
